FAERS Safety Report 18330252 (Version 8)
Quarter: 2022Q2

REPORT INFORMATION
  Report Type: Report from Study
  Country: GB (occurrence: GB)
  Receive Date: 20200930
  Receipt Date: 20220421
  Transmission Date: 20220721
  Serious: Yes (Hospitalization, Other)
  Sender: FDA-Public Use
  Company Number: GB-VERTEX PHARMACEUTICALS-2020-018148

PATIENT
  Age: 43 Year
  Sex: Male

DRUGS (22)
  1. AZITHROMYCIN [Suspect]
     Active Substance: AZITHROMYCIN
     Dosage: 250 MG, 1X/DAY
     Dates: end: 20200828
  2. KALYDECO [Suspect]
     Active Substance: IVACAFTOR
     Indication: Cystic fibrosis
     Dosage: 150 MG, 1X/DAY
     Route: 048
     Dates: start: 20191230, end: 20200904
  3. ELEXACAFTOR\IVACAFTOR\TEZACAFTOR [Suspect]
     Active Substance: ELEXACAFTOR\IVACAFTOR\TEZACAFTOR
     Indication: Cystic fibrosis
     Dosage: 2 TABS (IVA 75 MG/ TEZA 50 MG/ ELEXA 100 MG) AM MORNING
     Route: 048
     Dates: start: 20191217, end: 2020
  4. ELEXACAFTOR\IVACAFTOR\TEZACAFTOR [Suspect]
     Active Substance: ELEXACAFTOR\IVACAFTOR\TEZACAFTOR
     Dosage: 2 DF MORNING DOSE
     Route: 048
     Dates: end: 20200904
  5. LEVOFLOXACIN [Suspect]
     Active Substance: LEVOFLOXACIN
     Indication: Hepatic necrosis
     Dosage: UNK
  6. LEVOFLOXACIN [Suspect]
     Active Substance: LEVOFLOXACIN
     Dosage: UNK
     Dates: end: 20200904
  7. URSO [Suspect]
     Active Substance: URSODIOL
     Indication: Hepatic necrosis
     Dosage: UNK
     Dates: end: 20200904
  8. LORATADINE [Concomitant]
     Active Substance: LORATADINE
     Dosage: UNK
     Dates: start: 20200828, end: 20200828
  9. SERETIDE [Concomitant]
     Active Substance: FLUTICASONE PROPIONATE\SALMETEROL XINAFOATE
     Dosage: UNK
  10. CETIRIZINE [Concomitant]
     Active Substance: CETIRIZINE HYDROCHLORIDE
     Dosage: UNK
  11. INSULIN NOS [Concomitant]
     Active Substance: INSULIN NOS
     Dosage: UNK
  12. LANSOPRAZOLE [Concomitant]
     Active Substance: LANSOPRAZOLE
     Dosage: UNK
  13. CHOLECALCIFEROL [Concomitant]
     Active Substance: CHOLECALCIFEROL
     Dosage: UNK
  14. CALCIUM CARBONATE\CHOLECALCIFEROL [Concomitant]
     Active Substance: CALCIUM CARBONATE\CHOLECALCIFEROL
     Dosage: UNK
  15. VITAMIN E [Concomitant]
     Active Substance: .ALPHA.-TOCOPHEROL
     Dosage: UNK
  16. FLUTICASONE [Concomitant]
     Active Substance: FLUTICASONE
     Dosage: UNK
     Route: 045
  17. LEVEMIR [Concomitant]
     Active Substance: INSULIN DETEMIR
     Dosage: UNK
  18. DORNASE ALFA [Concomitant]
     Active Substance: DORNASE ALFA
     Dosage: UNK
  19. ALBUTEROL [Concomitant]
     Active Substance: ALBUTEROL
     Dosage: UNK
  20. ALBUTEROL [Concomitant]
     Active Substance: ALBUTEROL
     Dosage: UNK
     Route: 055
  21. CREON [Concomitant]
     Active Substance: PANCRELIPASE AMYLASE\PANCRELIPASE LIPASE\PANCRELIPASE PROTEASE
     Dosage: UNK
  22. COLISTIN [Concomitant]
     Active Substance: COLISTIN
     Dosage: UNK

REACTIONS (8)
  - Dry eye [Recovered/Resolved]
  - Abdominal discomfort [Unknown]
  - Liver injury [Unknown]
  - Hepatic necrosis [Recovering/Resolving]
  - Respiratory disorder [Unknown]
  - Weight decreased [Unknown]
  - Exercise tolerance decreased [Unknown]
  - Forced expiratory volume decreased [Not Recovered/Not Resolved]

NARRATIVE: CASE EVENT DATE: 20200110
